FAERS Safety Report 10950719 (Version 1)
Quarter: 2015Q1

REPORT INFORMATION
  Report Type: Spontaneous
  Country: JP (occurrence: JP)
  Receive Date: 20150324
  Receipt Date: 20150324
  Transmission Date: 20150721
  Serious: Yes (Other)
  Sender: FDA-Public Use
  Company Number: JP-PFIZER INC-2015086201

PATIENT
  Age: 5 Decade
  Sex: Male

DRUGS (1)
  1. SUTENT [Suspect]
     Active Substance: SUNITINIB MALATE
     Indication: GASTROINTESTINAL STROMAL TUMOUR
     Dosage: UNK
     Route: 048
     Dates: start: 20121005, end: 20121112

REACTIONS (4)
  - Platelet count decreased [Unknown]
  - Enterovesical fistula [Unknown]
  - Eating disorder [Unknown]
  - Melaena [Unknown]
